FAERS Safety Report 23238156 (Version 1)
Quarter: 2023Q4

REPORT INFORMATION
  Report Type: Spontaneous
  Country: US (occurrence: US)
  Receive Date: 20231129
  Receipt Date: 20231129
  Transmission Date: 20240110
  Serious: Yes (Other)
  Sender: FDA-Public Use
  Company Number: US-CIPLA LTD.-2023US07332

PATIENT

DRUGS (1)
  1. LENALIDOMIDE [Suspect]
     Active Substance: LENALIDOMIDE
     Indication: Product used for unknown indication
     Dosage: 25 MILLIGRAM, QD FOR 21 DAYS ON THEN 7 DAYS OFF
     Route: 065

REACTIONS (2)
  - Loss of consciousness [Unknown]
  - Heart rate irregular [Unknown]
